FAERS Safety Report 5808634-4 (Version None)
Quarter: 2008Q3

REPORT INFORMATION
  Report Type: 
  Country: None (occurrence: None)
  Receive Date: 20080714
  Receipt Date: 20080703
  Transmission Date: 20090109
  Serious: Yes (Death)
  Sender: FDA-Public Use
  Company Number: GR-AMGEN-UK273012

PATIENT
  Age: 75 Year
  Sex: Male

DRUGS (30)
  1. NEULASTA [Suspect]
     Indication: CHEMOTHERAPY
     Route: 058
     Dates: start: 20080123
  2. DIANICOTYL [Concomitant]
     Route: 048
     Dates: start: 20030221
  3. RIFADIN [Concomitant]
     Route: 048
     Dates: start: 20080221
  4. PYRAZINAMIDE [Concomitant]
     Route: 048
     Dates: start: 20080221
  5. PREZOLON [Concomitant]
     Route: 042
     Dates: start: 20080227, end: 20080304
  6. BESIX [Concomitant]
     Route: 048
     Dates: start: 20080223
  7. PARIET [Concomitant]
     Route: 048
     Dates: start: 20080101
  8. MEDROL [Concomitant]
     Route: 048
     Dates: start: 20080101, end: 20080202
  9. MERONEM [Concomitant]
     Route: 042
     Dates: start: 20080130, end: 20080221
  10. SEPTRIN [Concomitant]
     Route: 048
     Dates: start: 20071101, end: 20080208
  11. VFEND [Concomitant]
     Route: 042
     Dates: start: 20080208, end: 20080222
  12. SEPTRIN FORTE [Concomitant]
     Route: 042
     Dates: start: 20080208, end: 20080222
  13. TARGOCID [Concomitant]
     Route: 042
     Dates: start: 20080315, end: 20080321
  14. PRIMAXIN [Concomitant]
     Route: 042
     Dates: start: 20080315, end: 20080321
  15. MERONEM [Concomitant]
     Route: 042
     Dates: start: 20080321, end: 20080328
  16. KLARICID [Concomitant]
     Route: 042
     Dates: start: 20080321, end: 20080326
  17. COLISTIN SULFATE [Concomitant]
     Route: 042
     Dates: start: 20080321
  18. ALBUMIN (HUMAN) [Concomitant]
     Dates: start: 20080315
  19. AMBISOME [Concomitant]
     Dates: start: 20080321
  20. FRAXIPARINE [Concomitant]
     Dates: start: 20080323, end: 20080331
  21. ALLOPURINOL [Concomitant]
     Dates: start: 20080326, end: 20080331
  22. GANCICLOVIR [Concomitant]
     Dates: start: 20080328
  23. GRANULOKINE [Concomitant]
     Dates: start: 20080328
  24. CO-TRIMOXAZOLE [Concomitant]
     Dates: start: 20080323, end: 20080328
  25. ETHAMBUTOL HYDROCHLORIDE [Concomitant]
     Dates: start: 20080221
  26. RITUXIMAB [Concomitant]
     Route: 065
     Dates: start: 20080123
  27. CYCLOPHOSPHAMIDE [Concomitant]
     Route: 065
     Dates: start: 20080123
  28. DOXORUBICIN HCL [Concomitant]
     Route: 065
     Dates: start: 20080123
  29. VINCRISTINE [Concomitant]
     Route: 065
     Dates: start: 20080123
  30. PREZOLON [Concomitant]
     Route: 065
     Dates: start: 20080123

REACTIONS (4)
  - HYPOTENSION [None]
  - NEUTROPENIA [None]
  - SEPSIS [None]
  - WHITE BLOOD CELL COUNT DECREASED [None]
